FAERS Safety Report 22651257 (Version 1)
Quarter: 2023Q2

REPORT INFORMATION
  Report Type: Spontaneous
  Country: HR (occurrence: HR)
  Receive Date: 20230628
  Receipt Date: 20230628
  Transmission Date: 20230722
  Serious: Yes (Life-Threatening)
  Sender: FDA-Public Use
  Company Number: HR-TAKEDA-2023TUS062543

PATIENT
  Age: 71 Year
  Sex: Female

DRUGS (1)
  1. ALOGLIPTIN BENZOATE\METFORMIN HYDROCHLORIDE [Suspect]
     Active Substance: ALOGLIPTIN BENZOATE\METFORMIN HYDROCHLORIDE
     Indication: Diabetes mellitus
     Dosage: 1 DOSAGE FORM, Q12H
     Route: 065
     Dates: end: 20220804

REACTIONS (2)
  - Acute kidney injury [Recovered/Resolved]
  - Lactic acidosis [Recovered/Resolved]

NARRATIVE: CASE EVENT DATE: 20220804
